FAERS Safety Report 10887012 (Version 1)
Quarter: 2015Q1

REPORT INFORMATION
  Report Type: Spontaneous
  Country: US (occurrence: US)
  Receive Date: 20150304
  Receipt Date: 20150304
  Transmission Date: 20150721
  Serious: No
  Sender: FDA-Public Use
  Company Number: US-009507513-1502USA011027

PATIENT
  Sex: Male

DRUGS (1)
  1. GRASTEK [Suspect]
     Active Substance: PHLEUM PRATENSE POLLEN
     Indication: SEASONAL ALLERGY
     Dosage: 2800 BIOEQUIVALENT ALLERGY UNIT (BAU), ONCE A DAY
     Route: 048
     Dates: end: 201502

REACTIONS (2)
  - Oral pruritus [Recovered/Resolved]
  - Ear pruritus [Recovered/Resolved]
